FAERS Safety Report 5489177-7 (Version None)
Quarter: 2007Q4

REPORT INFORMATION
  Report Type: 
  Country: None (occurrence: None)
  Receive Date: 20071018
  Receipt Date: 20061009
  Transmission Date: 20080405
  Serious: Yes (Death, Hospitalization)
  Sender: FDA-Public Use
  Company Number: US-BRISTOL-MYERS SQUIBB COMPANY-13535091

PATIENT
  Age: 62 Year
  Sex: Female

DRUGS (4)
  1. MEGACE [Suspect]
     Indication: DECREASED APPETITE
     Route: 048
     Dates: start: 20060901
  2. LASIX [Concomitant]
  3. STEROIDS [Concomitant]
  4. CHEMOTHERAPY [Concomitant]

REACTIONS (1)
  - CARDIAC FAILURE CONGESTIVE [None]
